FAERS Safety Report 12179562 (Version 1)
Quarter: 2016Q1

REPORT INFORMATION
  Report Type: Report from Study
  Country: US (occurrence: US)
  Receive Date: 20160315
  Receipt Date: 20160315
  Transmission Date: 20160526
  Serious: Yes (Hospitalization)
  Sender: FDA-Public Use
  Company Number: US-EISAI MEDICAL RESEARCH-EC-2015-009729

PATIENT
  Sex: Female
  Weight: 77.1 kg

DRUGS (13)
  1. LENVIMA [Suspect]
     Active Substance: LENVATINIB
     Indication: THYROID CANCER
     Route: 048
     Dates: start: 20150811, end: 2015
  2. GABAPENTIN. [Concomitant]
     Active Substance: GABAPENTIN
  3. NORVASC [Concomitant]
     Active Substance: AMLODIPINE BESYLATE
  4. ZANTAC [Concomitant]
     Active Substance: RANITIDINE HYDROCHLORIDE
  5. CRESTOR [Concomitant]
     Active Substance: ROSUVASTATIN CALCIUM
  6. FERROUS SULFATE [Concomitant]
     Active Substance: FERROUS SULFATE\FERROUS SULFATE, DRIED
  7. COUMADIN [Concomitant]
     Active Substance: WARFARIN SODIUM
  8. ALBUTEROL SULFATE. [Concomitant]
     Active Substance: ALBUTEROL SULFATE
  9. NAPROXEN. [Concomitant]
     Active Substance: NAPROXEN
  10. LOSARTAN POTASSIUM. [Concomitant]
     Active Substance: LOSARTAN POTASSIUM
  11. LENVIMA [Suspect]
     Active Substance: LENVATINIB
     Route: 048
     Dates: start: 20151229
  12. LEVOTHYROXINE SODIUM. [Concomitant]
     Active Substance: LEVOTHYROXINE SODIUM
  13. POTASSIUM CHLORIDE. [Concomitant]
     Active Substance: POTASSIUM CHLORIDE

REACTIONS (17)
  - Constipation [Unknown]
  - Tenderness [Recovering/Resolving]
  - Nausea [Unknown]
  - Dyspnoea [Not Recovered/Not Resolved]
  - Bronchitis [Unknown]
  - Stomatitis [Recovering/Resolving]
  - Hypertension [Not Recovered/Not Resolved]
  - Malignant neoplasm progression [Unknown]
  - Fatigue [Unknown]
  - Oropharyngeal pain [Unknown]
  - Skin exfoliation [Recovering/Resolving]
  - Alopecia [Unknown]
  - Viral infection [Unknown]
  - Pain [Not Recovered/Not Resolved]
  - Odynophagia [Unknown]
  - Leukoplakia oral [Unknown]
  - Erythema [Recovering/Resolving]

NARRATIVE: CASE EVENT DATE: 2015
